FAERS Safety Report 9080857 (Version 1)
Quarter: 2013Q1

REPORT INFORMATION
  Report Type: Spontaneous
  Country: US (occurrence: US)
  Receive Date: 20130218
  Receipt Date: 20130218
  Transmission Date: 20140127
  Serious: Yes (Other)
  Sender: FDA-Public Use
  Company Number: US-PFIZER INC-2013060679

PATIENT
  Age: 67 Year
  Sex: Female
  Weight: 48.53 kg

DRUGS (2)
  1. LYRICA [Suspect]
     Indication: FIBROMYALGIA
     Dosage: 75 MG, 1X/DAY
     Route: 048
     Dates: start: 201301, end: 201302
  2. LORAZEPAM [Concomitant]
     Dosage: UNK

REACTIONS (5)
  - Hypersensitivity [Unknown]
  - Swelling face [Unknown]
  - Dry skin [Unknown]
  - Erythema [Unknown]
  - Lacrimation increased [Unknown]
